FAERS Safety Report 6852601-9 (Version None)
Quarter: 2010Q3

REPORT INFORMATION
  Report Type: 
  Country: None (occurrence: None)
  Receive Date: 20100717
  Receipt Date: 20071119
  Transmission Date: 20110219
  Serious: No
  Sender: FDA-Public Use
  Company Number: US-PFIZER INC-2007098751

PATIENT
  Sex: Female
  Weight: 102.3 kg

DRUGS (5)
  1. CHANTIX [Suspect]
     Indication: SMOKING CESSATION THERAPY
     Dates: start: 20071118
  2. HYDROCHLOROTHIAZIDE [Concomitant]
     Indication: HYPERTENSION
  3. OMEPRAZOLE [Concomitant]
  4. CLARITIN [Concomitant]
     Indication: HYPERSENSITIVITY
  5. VICODIN [Concomitant]
     Indication: ARTHRITIS

REACTIONS (4)
  - ANXIETY [None]
  - HEADACHE [None]
  - IRRITABILITY [None]
  - MYALGIA [None]
